FAERS Safety Report 4537094-9 (Version None)
Quarter: 2004Q4

REPORT INFORMATION
  Report Type: 
  Country: None (occurrence: None)
  Receive Date: 20041223
  Receipt Date: 20041222
  Transmission Date: 20050328
  Serious: Yes (Hospitalization)
  Sender: FDA-Public Use
  Company Number: FR-GLAXOSMITHKLINE-B0362584A

PATIENT
  Age: 49 Year
  Sex: Female

DRUGS (14)
  1. ZELITREX [Suspect]
     Indication: HERPES OPHTHALMIC
     Dosage: 1G THREE TIMES PER DAY
     Route: 048
     Dates: start: 20041123, end: 20041124
  2. PYOSTACINE 500 [Suspect]
     Indication: CONJUNCTIVITIS
     Dosage: 3G PER DAY
     Route: 048
     Dates: start: 20041122, end: 20041123
  3. APROVEL [Concomitant]
     Route: 048
  4. RENAGEL [Concomitant]
     Route: 048
  5. SELOKEN LP 200 [Concomitant]
     Route: 048
  6. LODALES 20 [Concomitant]
     Route: 048
  7. LASILIX [Concomitant]
  8. ROCALTROL [Concomitant]
     Route: 048
  9. ZOLOFT [Concomitant]
     Route: 048
  10. ASPEGIC 325 [Concomitant]
  11. LEXOMIL [Concomitant]
     Route: 048
  12. RIVOTRIL [Concomitant]
     Route: 048
  13. ACTRAPID [Concomitant]
  14. LANTUS [Concomitant]

REACTIONS (3)
  - BALANCE DISORDER [None]
  - CONFUSIONAL STATE [None]
  - HALLUCINATION, VISUAL [None]
